FAERS Safety Report 12083759 (Version 1)
Quarter: 2016Q1

REPORT INFORMATION
  Report Type: Spontaneous
  Country: US (occurrence: US)
  Receive Date: 20160217
  Receipt Date: 20160217
  Transmission Date: 20160526
  Serious: No
  Sender: FDA-Public Use
  Company Number: US-BAUSCH-BL-2015-026422

PATIENT
  Age: 56 Year
  Sex: Female
  Weight: 83.99 kg

DRUGS (1)
  1. TARGRETIN [Suspect]
     Active Substance: BEXAROTENE
     Indication: MYCOSIS FUNGOIDES
     Dosage: 2 CAPSULES EVERY MORNING AND 1 CAPSULE EVERY EVENING
     Route: 048
     Dates: start: 2015

REACTIONS (1)
  - Incorrect dose administered [Unknown]

NARRATIVE: CASE EVENT DATE: 20151105
